FAERS Safety Report 22362172 (Version 6)
Quarter: 2024Q4

REPORT INFORMATION
  Report Type: Spontaneous
  Country: DE (occurrence: DE)
  Receive Date: 20230524
  Receipt Date: 20241031
  Transmission Date: 20250115
  Serious: Yes (Hospitalization)
  Sender: NOVARTIS
  Company Number: DE-ROCHE-3347690

PATIENT
  Age: 57 Year
  Sex: Female

DRUGS (22)
  1. MAYZENT [Suspect]
     Active Substance: SIPONIMOD
     Indication: Relapsing multiple sclerosis
     Dosage: 2 MG,QD
     Route: 048
     Dates: start: 20220802
  2. OCRELIZUMAB [Suspect]
     Active Substance: OCRELIZUMAB
     Indication: Relapsing multiple sclerosis
     Dosage: 600MG (4 UNITS PER MONTH)
     Route: 042
     Dates: start: 20200421, end: 20211210
  3. OCRELIZUMAB [Suspect]
     Active Substance: OCRELIZUMAB
     Dosage: 300MG
     Route: 042
     Dates: start: 20200421, end: 20200505
  4. OCRELIZUMAB [Suspect]
     Active Substance: OCRELIZUMAB
     Dosage: 600MG
     Route: 042
     Dates: start: 20201027, end: 20211210
  5. PREDNISOLONE [Concomitant]
     Active Substance: PREDNISOLONE
     Indication: Premedication
     Dosage: 150 MG, BIW (END DATE WAS ONGOING)
     Route: 042
     Dates: start: 20200421
  6. METHYLPREDNISOLONE [Concomitant]
     Active Substance: METHYLPREDNISOLONE
     Indication: Product used for unknown indication
     Dosage: 1000 MG, QD
     Route: 042
     Dates: start: 20211015, end: 20211018
  7. ACETAMINOPHEN [Concomitant]
     Active Substance: ACETAMINOPHEN
     Indication: Premedication
     Dosage: 1000 MG, QW2 (END DATE WAS ONGOING)
     Route: 048
     Dates: start: 20200421
  8. ACETAMINOPHEN [Concomitant]
     Active Substance: ACETAMINOPHEN
     Dosage: 1000 MG, BIW
     Route: 048
     Dates: start: 20200421
  9. GLYCOPYRRONIUM\INDACATEROL [Concomitant]
     Active Substance: GLYCOPYRRONIUM\INDACATEROL
     Indication: Chronic obstructive pulmonary disease
     Dosage: UNK, QD (START DATE WAS UNKNOWN END DATE WAS ONGOING)
     Route: 055
  10. FOSTER [Concomitant]
     Active Substance: BECLOMETHASONE\FORMOTEROL
     Indication: Chronic obstructive pulmonary disease
     Dosage: UNK UNK, QD (START DATE WAS UNKNOWN END DATE WAS ONGOING)
     Route: 055
  11. FOSTER [Concomitant]
     Active Substance: BECLOMETHASONE\FORMOTEROL
     Dosage: UNK
     Route: 055
  12. FOSTER [Concomitant]
     Active Substance: BECLOMETHASONE\FORMOTEROL
     Dosage: UNK
     Route: 055
  13. RAMIPRIL [Concomitant]
     Active Substance: RAMIPRIL
     Indication: Hypertension
     Dosage: 5 MG,QD
     Route: 048
     Dates: end: 20230823
  14. RAMIPRIL [Concomitant]
     Active Substance: RAMIPRIL
     Dosage: 5 MG, QD
     Route: 048
     Dates: end: 20230823
  15. CITALOPRAM [Concomitant]
     Active Substance: CITALOPRAM
     Indication: Depression
     Dosage: 40 MG,QD
     Route: 048
  16. PANTOZOL [Concomitant]
     Active Substance: PANTOPRAZOLE SODIUM
     Indication: Product used for unknown indication
     Dosage: 40 MG, BIW
     Route: 048
     Dates: start: 20200421
  17. PANTOZOL [Concomitant]
     Active Substance: PANTOPRAZOLE SODIUM
     Dosage: 40 MG, QD (END DATE WAS ONGOING)
     Route: 048
     Dates: start: 20211015
  18. ENOXAPARIN SODIUM [Concomitant]
     Active Substance: ENOXAPARIN SODIUM
     Indication: Thrombosis prophylaxis
     Dosage: 0.4 MG,QD
     Route: 058
     Dates: start: 20211015
  19. ENOXAPARIN SODIUM [Concomitant]
     Active Substance: ENOXAPARIN SODIUM
     Dosage: 40 MG,QD
     Route: 058
     Dates: start: 20220609, end: 20220614
  20. METHYLPREDNISOLONE [Concomitant]
     Active Substance: METHYLPREDNISOLONE
     Indication: Product used for unknown indication
     Dosage: 1000 MG, QD
     Route: 042
     Dates: start: 20220610, end: 20220614
  21. GLYCOPYRRONIUM\INDACATEROL [Concomitant]
     Active Substance: GLYCOPYRRONIUM\INDACATEROL
     Indication: Chronic obstructive pulmonary disease
     Dosage: UNK
     Route: 055
  22. DYSPORT [Concomitant]
     Active Substance: ABOBOTULINUMTOXINA
     Indication: Torticollis
     Dosage: 300
     Route: 030
     Dates: start: 20240812

REACTIONS (4)
  - Pneumonia [Recovered/Resolved]
  - Incisional hernia [Recovered/Resolved]
  - Pneumonia [Recovered/Resolved]
  - Incisional hernia [Recovered/Resolved]

NARRATIVE: CASE EVENT DATE: 20221216
